FAERS Safety Report 5700430-1 (Version None)
Quarter: 2008Q2

REPORT INFORMATION
  Report Type: 
  Country: None (occurrence: None)
  Receive Date: 20080407
  Receipt Date: 20080320
  Transmission Date: 20081010
  Serious: Yes (Other)
  Sender: FDA-Public Use
  Company Number: 002#2#2008-00126

PATIENT
  Age: 54 Year
  Sex: 0

DRUGS (4)
  1. REGLAN [Suspect]
     Indication: GASTROINTESTINAL MOTILITY DISORDER
     Dosage: 5MG, 3 IN 1 D,ORAL
     Route: 048
     Dates: start: 20070701, end: 20080205
  2. GLEEVEC [Concomitant]
  3. ASPIRIN [Concomitant]
  4. DOMPERIDONE [Concomitant]

REACTIONS (15)
  - AGITATION [None]
  - ANXIETY [None]
  - DEPRESSION [None]
  - DISTURBANCE IN ATTENTION [None]
  - DRUG INEFFECTIVE [None]
  - DYSPHAGIA [None]
  - HYPOAESTHESIA [None]
  - HYPOAESTHESIA ORAL [None]
  - INSOMNIA [None]
  - MUSCLE SPASMS [None]
  - MUSCLE TIGHTNESS [None]
  - MYDRIASIS [None]
  - PALPITATIONS [None]
  - RESTLESSNESS [None]
  - TARDIVE DYSKINESIA [None]
